FAERS Safety Report 5491522-3 (Version None)
Quarter: 2007Q4

REPORT INFORMATION
  Report Type: 
  Country: None (occurrence: None)
  Receive Date: 20071022
  Receipt Date: 20071012
  Transmission Date: 20080405
  Serious: Yes (Hospitalization)
  Sender: FDA-Public Use
  Company Number: PHBS2007CH17004

PATIENT
  Sex: Female

DRUGS (11)
  1. VOLTAREN [Suspect]
     Indication: BACK PAIN
  2. NITRODERM [Concomitant]
     Dosage: 1 PATCH/DAY
     Route: 062
  3. PREDNISONE [Concomitant]
     Dosage: 2.5 MG/DAY
     Route: 048
  4. PLAVIX [Concomitant]
     Dosage: 1 TABLET/DAY
     Route: 048
  5. DILATREND [Concomitant]
     Dosage: 12.5 MG/DAY
     Route: 048
  6. ELTROXIN [Concomitant]
     Dosage: 50 UG/DAY
     Route: 048
  7. ROHYPNOL [Concomitant]
     Dosage: 0.5 MG/DAY
     Route: 048
  8. ZYLORIC [Concomitant]
     Dosage: 100 MG/DAY
     Route: 048
  9. TORSEMIDE [Concomitant]
     Dosage: UNK, UNK
     Route: 048
  10. DIGOXIN [Concomitant]
     Dosage: 0.125 MG, QW3
     Route: 048
  11. ROCALTROL [Concomitant]
     Dosage: 0.25 UG/DAY
     Route: 048

REACTIONS (12)
  - AORTIC ARTERIOSCLEROSIS [None]
  - ATRIOVENTRICULAR BLOCK FIRST DEGREE [None]
  - CARDIAC FAILURE [None]
  - CARDIOMEGALY [None]
  - CHEST PAIN [None]
  - DYSPNOEA [None]
  - EMPHYSEMA [None]
  - LUNG DISORDER [None]
  - LUNG INFILTRATION [None]
  - PLEURAL EFFUSION [None]
  - RALES [None]
  - SINUS RHYTHM [None]
